FAERS Safety Report 25045496 (Version 1)
Quarter: 2025Q1

REPORT INFORMATION
  Report Type: Spontaneous
  Country: US (occurrence: None)
  Receive Date: 20250306
  Receipt Date: 20250306
  Transmission Date: 20250409
  Serious: Yes (Hospitalization)
  Sender: FDA-CTU
  Company Number: None

PATIENT
  Age: 74 Year
  Sex: Male
  Weight: 75.3 kg

DRUGS (5)
  1. FLUOROURACIL [Suspect]
     Active Substance: FLUOROURACIL
     Dates: end: 20250124
  2. CAMPTOSAR [Suspect]
     Active Substance: IRINOTECAN HYDROCHLORIDE
     Dates: end: 20250124
  3. LEUCOVORIN CALCIUM [Suspect]
     Active Substance: LEUCOVORIN CALCIUM
     Dates: end: 20250124
  4. NIVOLUMAB [Suspect]
     Active Substance: NIVOLUMAB
     Dates: end: 20250124
  5. OXALIPLATIN [Suspect]
     Active Substance: OXALIPLATIN
     Dates: end: 20250124

REACTIONS (11)
  - Sepsis [None]
  - Pneumonia [None]
  - Immune-mediated lung disease [None]
  - Pneumonia [None]
  - Bronchitis [None]
  - Blood culture positive [None]
  - Staphylococcal infection [None]
  - False positive investigation result [None]
  - Endocarditis bacterial [None]
  - Mitral valve disease [None]
  - Cardiac valve vegetation [None]

NARRATIVE: CASE EVENT DATE: 20250224
